FAERS Safety Report 22192745 (Version 1)
Quarter: 2023Q2

REPORT INFORMATION
  Report Type: Spontaneous
  Country: US (occurrence: None)
  Receive Date: 20230410
  Receipt Date: 20230410
  Transmission Date: 20230721
  Serious: No
  Sender: FDA-Public Use
  Company Number: None

PATIENT
  Age: 64 Year
  Sex: Female
  Weight: 66.86 kg

DRUGS (11)
  1. IBRANCE [Suspect]
     Active Substance: PALBOCICLIB
     Indication: Breast cancer female
     Dosage: OTHER FREQUENCY : 21DON7DOFF;?
     Route: 048
     Dates: start: 202303, end: 20230404
  2. BRIMONIDINE [Concomitant]
  3. DULOXETINE [Concomitant]
  4. ELIQUIS [Concomitant]
  5. CALCIUM [Concomitant]
     Active Substance: CALCIUM
  6. IRON [Concomitant]
  7. LETROZOLE [Concomitant]
  8. LUMIGAN [Concomitant]
  9. PRAVASTATIN [Concomitant]
  10. TIMOLOL [Concomitant]
  11. TRAMADOL [Concomitant]

REACTIONS (2)
  - Malignant neoplasm progression [None]
  - Therapy cessation [None]

NARRATIVE: CASE EVENT DATE: 20230404
